FAERS Safety Report 8608398-5 (Version None)
Quarter: 2012Q3

REPORT INFORMATION
  Report Type: 
  Country: None (occurrence: None)
  Receive Date: 20120821
  Receipt Date: 20120809
  Transmission Date: 20120928
  Serious: Yes (Other)
  Sender: FDA-Public Use
  Company Number: US-ELI_LILLY_AND_COMPANY-US201208003253

PATIENT
  Sex: Female

DRUGS (3)
  1. LEVEMIR [Concomitant]
  2. DRUG USED IN DIABETES [Concomitant]
     Route: 048
  3. HUMALOG [Suspect]
     Indication: DIABETES MELLITUS
     Dosage: UNK, UNKNOWN

REACTIONS (4)
  - INSULIN RESISTANCE [None]
  - BLOOD GLUCOSE ABNORMAL [None]
  - LIVER INJURY [None]
  - DRUG INEFFECTIVE [None]
